FAERS Safety Report 4928202-6 (Version None)
Quarter: 2006Q1

REPORT INFORMATION
  Report Type: 
  Country: None (occurrence: None)
  Receive Date: 20060223
  Receipt Date: 20060209
  Transmission Date: 20060701
  Serious: Yes (Hospitalization)
  Sender: FDA-Public Use
  Company Number: 8014623

PATIENT
  Age: 17 Year
  Sex: Female
  Weight: 60 kg

DRUGS (3)
  1. KEPPRA [Suspect]
     Indication: ANGELMAN'S SYNDROME
     Dosage: 1250 MG PO
     Route: 048
     Dates: start: 20051101
  2. KEPPRA [Suspect]
     Indication: EPILEPSY
     Dosage: 1250 MG PO
     Route: 048
     Dates: start: 20051101
  3. VALPROATE SODIUM [Concomitant]

REACTIONS (7)
  - ACUTE LYMPHOCYTIC LEUKAEMIA [None]
  - ANTICONVULSANT DRUG LEVEL ABOVE THERAPEUTIC [None]
  - FATIGUE [None]
  - GENERAL PHYSICAL CONDITION ABNORMAL [None]
  - LEUKOPENIA [None]
  - MOOD ALTERED [None]
  - PALLOR [None]
